FAERS Safety Report 21209051 (Version 3)
Quarter: 2022Q3

REPORT INFORMATION
  Report Type: Report from Study
  Country: FR (occurrence: FR)
  Receive Date: 20220812
  Receipt Date: 20220826
  Transmission Date: 20221027
  Serious: Yes (Hospitalization)
  Sender: FDA-Public Use
  Company Number: FR-PFM-2022-06109

PATIENT
  Age: 63 Year
  Sex: Female
  Weight: 64 kg

DRUGS (4)
  1. BINIMETINIB [Suspect]
     Active Substance: BINIMETINIB
     Indication: Malignant melanoma
     Dosage: 45 MG
     Route: 048
     Dates: start: 20220629, end: 20220720
  2. BINIMETINIB [Suspect]
     Active Substance: BINIMETINIB
     Dosage: 30 MG
     Route: 048
     Dates: start: 20220811
  3. ENCORAFENIB [Suspect]
     Active Substance: ENCORAFENIB
     Indication: Malignant melanoma
     Dosage: 450 MG
     Route: 048
     Dates: start: 20220629, end: 20220726
  4. ENCORAFENIB [Suspect]
     Active Substance: ENCORAFENIB
     Dosage: 300 MG
     Route: 048
     Dates: start: 20220811

REACTIONS (2)
  - Neuralgia [Recovered/Resolved]
  - Myalgia [Recovered/Resolved]

NARRATIVE: CASE EVENT DATE: 20220729
